FAERS Safety Report 14090956 (Version 1)
Quarter: 2017Q4

REPORT INFORMATION
  Report Type: Report from Study
  Country: CO (occurrence: CO)
  Receive Date: 20171016
  Receipt Date: 20171016
  Transmission Date: 20180321
  Serious: Yes (Other)
  Sender: FDA-Public Use
  Company Number: CO-AMGEN-COLSL2017154355

PATIENT
  Age: 76 Year
  Sex: Male

DRUGS (1)
  1. XGEVA [Suspect]
     Active Substance: DENOSUMAB
     Indication: BONE DISORDER
     Dosage: 120 MG, QMO
     Route: 058
     Dates: start: 20161124, end: 20170728

REACTIONS (1)
  - Adverse event [Not Recovered/Not Resolved]
